FAERS Safety Report 4664649-3 (Version None)
Quarter: 2005Q2

REPORT INFORMATION
  Report Type: 
  Country: None (occurrence: None)
  Receive Date: 20050518
  Receipt Date: 20050512
  Transmission Date: 20051028
  Serious: Yes (Other)
  Sender: FDA-Public Use
  Company Number: JP-ROCHE-404721

PATIENT
  Age: 92 Year
  Sex: Male

DRUGS (6)
  1. TAMIFLU [Suspect]
     Indication: INFLUENZA
     Route: 048
     Dates: start: 20050430, end: 20050502
  2. NICARDIPINE HCL [Concomitant]
  3. BRUFEN [Concomitant]
  4. TRANSAMIN [Concomitant]
  5. DASEN [Concomitant]
  6. MEDICON [Concomitant]

REACTIONS (2)
  - DYSPNOEA [None]
  - INTERSTITIAL LUNG DISEASE [None]
